FAERS Safety Report 7736343-3 (Version None)
Quarter: 2011Q3

REPORT INFORMATION
  Report Type: 
  Country: None (occurrence: None)
  Receive Date: 20110908
  Receipt Date: 20110829
  Transmission Date: 20111222
  Serious: Yes (Other)
  Sender: FDA-Public Use
  Company Number: JP-UCBSA-036556

PATIENT
  Sex: Female

DRUGS (2)
  1. RINDERON-VG [Concomitant]
     Indication: DERMATITIS
     Route: 061
     Dates: start: 20101210
  2. XYZAL [Suspect]
     Indication: DERMATITIS ATOPIC
     Route: 048
     Dates: start: 20101210, end: 20110525

REACTIONS (5)
  - OEDEMA [None]
  - HEPATIC STEATOSIS [None]
  - OBESITY [None]
  - LIVER FUNCTION TEST ABNORMAL [None]
  - MALAISE [None]
